FAERS Safety Report 8249286-6 (Version None)
Quarter: 2012Q2

REPORT INFORMATION
  Report Type: 
  Country: None (occurrence: None)
  Receive Date: 20120402
  Receipt Date: 20120323
  Transmission Date: 20120825
  Serious: Yes (Hospitalization)
  Sender: FDA-Public Use
  Company Number: US-BAYER-2012-028778

PATIENT
  Age: 24 Year
  Sex: Female

DRUGS (5)
  1. POTASSIUM [Concomitant]
  2. METFORMIN HCL [Concomitant]
  3. YASMIN [Suspect]
     Indication: VAGINAL HAEMORRHAGE
  4. YAZ [Suspect]
     Indication: MENSTRUATION IRREGULAR
  5. ALBUTEROL [Concomitant]
     Dosage: NEBULIZATION 4 TIMES A DAY

REACTIONS (1)
  - PULMONARY EMBOLISM [None]
